FAERS Safety Report 25579690 (Version 2)
Quarter: 2025Q3

REPORT INFORMATION
  Report Type: Spontaneous
  Country: US (occurrence: US)
  Receive Date: 20250718
  Receipt Date: 20250718
  Transmission Date: 20251021
  Serious: No
  Sender: NOVO NORDISK
  Company Number: US-NOVOPROD-1284993

PATIENT
  Age: 44 Year
  Sex: Female

DRUGS (25)
  1. WEGOVY [Suspect]
     Active Substance: SEMAGLUTIDE
     Indication: Product used for unknown indication
     Route: 058
     Dates: start: 20240705
  2. WEGOVY [Suspect]
     Active Substance: SEMAGLUTIDE
     Indication: Product used for unknown indication
     Route: 058
     Dates: start: 202407
  3. PROCHLORPERAZINE [Concomitant]
     Active Substance: PROCHLORPERAZINE
  4. NORTRIPTYLINE [Concomitant]
     Active Substance: NORTRIPTYLINE
  5. ONABOTULINUMTOXINA [Concomitant]
     Active Substance: ONABOTULINUMTOXINA
  6. ELETRIPTAN [Concomitant]
     Active Substance: ELETRIPTAN
  7. IBUPROFEN [Concomitant]
     Active Substance: IBUPROFEN
  8. LEVOCETIRIZINE HYDROCHLORIDE [Concomitant]
     Active Substance: LEVOCETIRIZINE HYDROCHLORIDE
  9. TIMOLOL MALEATE [Concomitant]
     Active Substance: TIMOLOL MALEATE
  10. FREMANEZUMAB-VFRM [Concomitant]
     Active Substance: FREMANEZUMAB-VFRM
  11. BENADRYL ALLERGY + COLD [Concomitant]
  12. EPINEPHRINE [Concomitant]
     Active Substance: EPINEPHRINE
  13. AZELASTINE [Concomitant]
     Active Substance: AZELASTINE
  14. BUDESONIDE\FORMOTEROL [Concomitant]
     Active Substance: BUDESONIDE\FORMOTEROL
  15. FAMOTIDINE [Concomitant]
     Active Substance: FAMOTIDINE
  16. OLOPATADINE [Concomitant]
     Active Substance: OLOPATADINE
  17. METOPROLOL SUCCINATE [Concomitant]
     Active Substance: METOPROLOL SUCCINATE
  18. DIVALPROEX SODIUM [Concomitant]
     Active Substance: DIVALPROEX SODIUM
  19. CICLESONIDE [Concomitant]
     Active Substance: CICLESONIDE
  20. HYDROXYZINE HYDROCHLORIDE [Concomitant]
     Active Substance: HYDROXYZINE HYDROCHLORIDE
  21. EPINEPHRINE [Concomitant]
     Active Substance: EPINEPHRINE
  22. DEXTRAN\HYPROMELLOSES [Concomitant]
     Active Substance: DEXTRAN\HYPROMELLOSES
  23. ONDANSETRON [Concomitant]
     Active Substance: ONDANSETRON
  24. CETIRIZINE HYDROCHLORIDE [Concomitant]
     Active Substance: CETIRIZINE HYDROCHLORIDE
  25. CHOLECALCIFEROL [Concomitant]
     Active Substance: CHOLECALCIFEROL

REACTIONS (11)
  - Adverse drug reaction [Unknown]
  - Injection site pain [Recovered/Resolved]
  - Weight increased [Unknown]
  - Frequent bowel movements [Unknown]
  - Nausea [Unknown]
  - Constipation [Unknown]
  - Vertigo [Not Recovered/Not Resolved]
  - Dizziness [Not Recovered/Not Resolved]
  - Headache [Not Recovered/Not Resolved]
  - Paraesthesia [Not Recovered/Not Resolved]
  - Temperature intolerance [Not Recovered/Not Resolved]

NARRATIVE: CASE EVENT DATE: 20240801
